FAERS Safety Report 11296678 (Version 1)
Quarter: 2015Q3

REPORT INFORMATION
  Report Type: Spontaneous
  Country: US (occurrence: US)
  Receive Date: 20150722
  Receipt Date: 20150722
  Transmission Date: 20151125
  Serious: Yes (Hospitalization, Other)
  Sender: FDA-Public Use
  Company Number: US-ELI_LILLY_AND_COMPANY-US201005003494

PATIENT
  Age: 70 Year
  Sex: Male
  Weight: 75.74 kg

DRUGS (13)
  1. ASPIRIN. [Concomitant]
     Active Substance: ASPIRIN
     Dosage: 81 MG, DAILY (1/D)
     Route: 065
  2. NOVOLOG [Concomitant]
     Active Substance: INSULIN ASPART
  3. FAMOTIDINE. [Concomitant]
     Active Substance: FAMOTIDINE
  4. OXYCONTIN [Concomitant]
     Active Substance: OXYCODONE HYDROCHLORIDE
  5. EFFIENT [Suspect]
     Active Substance: PRASUGREL HYDROCHLORIDE
     Indication: PERCUTANEOUS CORONARY INTERVENTION
     Dosage: 10 MG, UNKNOWN
     Route: 065
     Dates: start: 20100203
  6. PAXIL [Concomitant]
     Active Substance: PAROXETINE HYDROCHLORIDE
  7. LEVEMIR [Concomitant]
     Active Substance: INSULIN DETEMIR
  8. RANEXA [Concomitant]
     Active Substance: RANOLAZINE
  9. LIPITOR [Concomitant]
     Active Substance: ATORVASTATIN CALCIUM
  10. OXYCODONE [Concomitant]
     Active Substance: OXYCODONE
  11. PREDNISONE. [Concomitant]
     Active Substance: PREDNISONE
  12. METOPROLOL [Concomitant]
     Active Substance: METOPROLOL
  13. XANAX [Concomitant]
     Active Substance: ALPRAZOLAM

REACTIONS (1)
  - Gastrointestinal haemorrhage [Recovered/Resolved]

NARRATIVE: CASE EVENT DATE: 2010
